FAERS Safety Report 23821436 (Version 1)
Quarter: 2024Q2

REPORT INFORMATION
  Report Type: Spontaneous
  Country: US (occurrence: None)
  Receive Date: 20240504
  Receipt Date: 20240504
  Transmission Date: 20240716
  Serious: Yes (Hospitalization)
  Sender: FDA-Public Use
  Company Number: None

PATIENT
  Age: 75 Year
  Sex: Male
  Weight: 109 kg

DRUGS (1)
  1. APIXABAN [Suspect]
     Active Substance: APIXABAN
     Indication: Atrial fibrillation
     Dosage: FREQUENCY : TWICE A DAY;?
     Route: 048
     Dates: start: 20220616, end: 20221103

REACTIONS (4)
  - Gastrointestinal haemorrhage [None]
  - Therapy interrupted [None]
  - Portal hypertensive gastropathy [None]
  - Gastrointestinal disorder [None]

NARRATIVE: CASE EVENT DATE: 20221103
